FAERS Safety Report 8927133 (Version 2)
Quarter: 2012Q4

REPORT INFORMATION
  Report Type: 
  Country: PT (occurrence: PT)
  Receive Date: 20121127
  Receipt Date: 20121129
  Transmission Date: 20130627
  Serious: Yes (Other)
  Sender: FDA-Public Use
  Company Number: PT-VERTEX PHARMACEUTICAL INC.-000000000000001328

PATIENT
  Age: 33 Year
  Sex: Male

DRUGS (3)
  1. INCIVO [Suspect]
     Indication: HEPATITIS C
     Dosage: Dosage Form: Tablet
     Route: 065
     Dates: start: 20120723, end: 20121115
  2. RIBAVIRIN [Concomitant]
     Indication: HEPATITIS C
     Dosage: Dosage Form: Unspecified
     Route: 065
  3. PEGINTERFERON ALFA-2A [Concomitant]
     Indication: HEPATITIS C
     Dosage: Dosage Form: Unspecified
     Route: 065

REACTIONS (8)
  - Neutropenia [Unknown]
  - Proctalgia [Recovered/Resolved]
  - Tongue pigmentation [Recovered/Resolved]
  - Anxiety [Unknown]
  - Headache [Unknown]
  - Myalgia [Unknown]
  - Asthenia [Unknown]
  - Anal fissure [Unknown]
